FAERS Safety Report 4454039-0 (Version None)
Quarter: 2004Q3

REPORT INFORMATION
  Report Type: 
  Country: None (occurrence: None)
  Receive Date: 20040920
  Receipt Date: 20040908
  Transmission Date: 20050211
  Serious: Yes (Other)
  Sender: FDA-Public Use
  Company Number: US-BRISTOL-MYERS SQUIBB COMPANY-12701652

PATIENT
  Age: 38 Year
  Sex: Female

DRUGS (4)
  1. SERZONE [Suspect]
     Route: 048
     Dates: start: 19990101, end: 20010101
  2. REGLAN [Concomitant]
  3. XANAX [Concomitant]
  4. PEPCID [Concomitant]

REACTIONS (5)
  - GALLBLADDER DISORDER [None]
  - GASTRITIS [None]
  - HEPATIC FIBROSIS [None]
  - HEPATIC STEATOSIS [None]
  - HEPATITIS C [None]
